FAERS Safety Report 6149854-1 (Version None)
Quarter: 2009Q2

REPORT INFORMATION
  Report Type: 
  Country: None (occurrence: None)
  Receive Date: 20090409
  Receipt Date: 20090330
  Transmission Date: 20091009
  Serious: Yes (Other)
  Sender: FDA-Public Use
  Company Number: ZA-ELI_LILLY_AND_COMPANY-ZA200904000053

PATIENT
  Age: 13 Year
  Sex: Male

DRUGS (3)
  1. STRATTERA [Suspect]
     Indication: ATTENTION DEFICIT/HYPERACTIVITY DISORDER
     Dosage: UNK, UNKNOWN
     Route: 065
     Dates: start: 20060301
  2. STRATTERA [Suspect]
     Dosage: 80 MG, DAILY (1/D)
     Route: 065
  3. CONCERTA [Concomitant]
     Dosage: 18 MG, UNKNOWN
     Route: 065

REACTIONS (5)
  - DISTURBANCE IN ATTENTION [None]
  - MEMORY IMPAIRMENT [None]
  - MOOD SWINGS [None]
  - SELF ESTEEM DECREASED [None]
  - SUICIDAL IDEATION [None]
